FAERS Safety Report 9362166 (Version 2)
Quarter: 2013Q3

REPORT INFORMATION
  Report Type: Report from Study
  Country: US (occurrence: US)
  Receive Date: 20130622
  Receipt Date: 20130708
  Transmission Date: 20140515
  Serious: Yes (Hospitalization)
  Sender: FDA-Public Use
  Company Number: US-009507513-1210USA003207

PATIENT
  Age: 63 Year
  Sex: Male
  Weight: 83.9 kg

DRUGS (14)
  1. RIDAFOROLIMUS [Suspect]
     Indication: RENAL CELL CARCINOMA
     Dosage: 20 MG, QD X 5 DAYS Q WK
     Route: 048
     Dates: start: 20120614, end: 20121008
  2. MK-0683 [Suspect]
     Indication: RENAL CELL CARCINOMA
     Dosage: 100 MG, TIW
     Route: 048
     Dates: start: 20120614, end: 20121006
  3. COUMADIN [Concomitant]
     Indication: DEEP VEIN THROMBOSIS
     Dosage: UNK
     Dates: start: 2006
  4. KLOR-CON [Concomitant]
  5. ASPIRIN [Concomitant]
  6. VITAMIN B (UNSPECIFIED) [Concomitant]
  7. CALCIUM (UNSPECIFIED) (+) VITAMIN D (UNSPECIFIED) [Concomitant]
  8. NOVOLOG [Concomitant]
  9. LANTUS [Concomitant]
  10. LOPRESSOR [Concomitant]
  11. LISINOPRIL [Concomitant]
  12. ZOCOR [Concomitant]
     Route: 048
  13. LASIX (FUROSEMIDE) [Concomitant]
  14. LOVAZA [Concomitant]

REACTIONS (1)
  - Pulmonary haemorrhage [Recovered/Resolved]
